FAERS Safety Report 8017138-2 (Version None)
Quarter: 2012Q1

REPORT INFORMATION
  Report Type: 
  Country: None (occurrence: None)
  Receive Date: 20120102
  Receipt Date: 20111220
  Transmission Date: 20120608
  Serious: Yes (Death, Hospitalization)
  Sender: FDA-Public Use
  Company Number: US-ROCHE-1015169

PATIENT
  Sex: Female
  Weight: 84.444 kg

DRUGS (2)
  1. TARCEVA [Suspect]
     Indication: LUNG NEOPLASM MALIGNANT
     Dates: start: 20090116, end: 20110923
  2. AVASTIN [Suspect]
     Indication: LUNG NEOPLASM MALIGNANT
     Dates: start: 20090116, end: 20110418

REACTIONS (14)
  - HYPOTENSION [None]
  - CARDIOPULMONARY FAILURE [None]
  - NEOPLASM PROGRESSION [None]
  - LUNG CANCER METASTATIC [None]
  - PERIPHERAL COLDNESS [None]
  - TACHYCARDIA [None]
  - PANIC ATTACK [None]
  - DEHYDRATION [None]
  - FALL [None]
  - VOMITING [None]
  - DYSPNOEA [None]
  - PULMONARY HYPERTENSION [None]
  - ASPIRATION [None]
  - RENAL FAILURE ACUTE [None]
